FAERS Safety Report 25791707 (Version 1)
Quarter: 2025Q3

REPORT INFORMATION
  Report Type: Spontaneous
  Country: PE (occurrence: PE)
  Receive Date: 20250911
  Receipt Date: 20250911
  Transmission Date: 20251021
  Serious: Yes (Death, Hospitalization, Other)
  Sender: QUAGEN PHARMACEUTICALS
  Company Number: PE-QUAGEN-2025QUALIT00618

PATIENT
  Age: 68 Year
  Sex: Male

DRUGS (3)
  1. TRIAMCINOLONE ACETONIDE [Suspect]
     Active Substance: TRIAMCINOLONE ACETONIDE
     Indication: Vitiligo
     Route: 065
  2. CLOBETASOL PROPIONATE [Suspect]
     Active Substance: CLOBETASOL PROPIONATE
     Indication: Vitiligo
     Route: 065
  3. TACROLIMUS [Suspect]
     Active Substance: TACROLIMUS
     Indication: Vitiligo
     Route: 065

REACTIONS (8)
  - Disseminated paracoccidioidomycosis [Fatal]
  - Multiple organ dysfunction syndrome [Fatal]
  - Human T-cell lymphotropic virus type I infection [Fatal]
  - Hypoxia [Fatal]
  - Condition aggravated [Fatal]
  - Staphylococcal infection [Fatal]
  - Klebsiella infection [Fatal]
  - Product use in unapproved indication [Unknown]
